FAERS Safety Report 13885421 (Version 1)
Quarter: 2017Q3

REPORT INFORMATION
  Report Type: Spontaneous
  Country: TW (occurrence: TW)
  Receive Date: 20170821
  Receipt Date: 20170821
  Transmission Date: 20171127
  Serious: Yes (Other)
  Sender: FDA-Public Use
  Company Number: TW-TAKEDA-2016TUS004101

PATIENT
  Age: 54 Year
  Sex: Female

DRUGS (3)
  1. COLCHICINE. [Suspect]
     Active Substance: COLCHICINE
     Indication: PRODUCT USED FOR UNKNOWN INDICATION
     Dosage: 0.6 MG, UNK
     Route: 048
  2. COLCHICINE. [Interacting]
     Active Substance: COLCHICINE
     Dosage: 0.6 MG, BID
     Route: 048
  3. FLUCONAZOLE. [Interacting]
     Active Substance: FLUCONAZOLE
     Indication: FUNGAL CYSTITIS
     Dosage: 100 MG, QD
     Route: 048

REACTIONS (2)
  - Drug interaction [Unknown]
  - Neuromyopathy [Unknown]
